FAERS Safety Report 6507194-2 (Version None)
Quarter: 2009Q4

REPORT INFORMATION
  Report Type: 
  Country: None (occurrence: None)
  Receive Date: 20091221
  Receipt Date: 20091211
  Transmission Date: 20100525
  Serious: Yes (Hospitalization)
  Sender: FDA-Public Use
  Company Number: PHEH2009US17645

PATIENT
  Sex: Male

DRUGS (1)
  1. EXJADE [Suspect]
     Indication: MULTIPLE MYELOMA
     Dosage: 1000 MG DAILY
     Route: 048
     Dates: start: 20080915

REACTIONS (1)
  - HYPOTENSION [None]
